FAERS Safety Report 8198785-4 (Version None)
Quarter: 2012Q1

REPORT INFORMATION
  Report Type: 
  Country: None (occurrence: None)
  Receive Date: 20120309
  Receipt Date: 20120207
  Transmission Date: 20120608
  Serious: No
  Sender: FDA-Public Use
  Company Number: US-AMGEN-USASP2011005683

PATIENT
  Age: 86 Year
  Sex: Female
  Weight: 55.329 kg

DRUGS (9)
  1. LEVOTHYROXINE SODIUM [Concomitant]
     Dosage: UNK
  2. TOPROL-XL [Concomitant]
     Dosage: UNK
  3. PROLIA [Suspect]
     Dosage: 60 MG/ML, Q6MO
     Dates: start: 20110412, end: 20110412
  4. AVALIDE [Concomitant]
     Dosage: UNK
  5. CALCIUM [Concomitant]
     Dosage: UNK
  6. PROLIA [Suspect]
     Indication: OSTEOPOROSIS POSTMENOPAUSAL
     Dosage: 60 MG/ML, Q6MO
     Dates: start: 20100902, end: 20100902
  7. VITAMIN D [Concomitant]
     Dosage: UNK
  8. VITAMIN B-12 [Concomitant]
     Dosage: UNK
  9. NIACIN [Concomitant]
     Dosage: UNK

REACTIONS (8)
  - NERVOUSNESS [None]
  - CHEST PAIN [None]
  - DYSGEUSIA [None]
  - BONE PAIN [None]
  - SLEEP DISORDER [None]
  - MUSCULOSKELETAL CHEST PAIN [None]
  - DYSPHAGIA [None]
  - CHEST DISCOMFORT [None]
